FAERS Safety Report 7073045-3 (Version None)
Quarter: 2010Q4

REPORT INFORMATION
  Report Type: 
  Country: None (occurrence: None)
  Receive Date: 20101029
  Receipt Date: 20100415
  Transmission Date: 20110411
  Serious: No
  Sender: FDA-Public Use
  Company Number: A0855238A

PATIENT
  Age: 65 Year
  Sex: Male

DRUGS (2)
  1. ADVAIR DISKUS 100/50 [Suspect]
     Route: 055
     Dates: start: 20100408
  2. BLOOD PRESSURE MEDICATION [Concomitant]

REACTIONS (1)
  - DRUG INEFFECTIVE [None]
